FAERS Safety Report 4847091-1 (Version None)
Quarter: 2005Q4

REPORT INFORMATION
  Report Type: 
  Country: None (occurrence: None)
  Receive Date: 20051205
  Receipt Date: 20051205
  Transmission Date: 20060501
  Serious: Yes (Death)
  Sender: FDA-Public Use
  Company Number: None

PATIENT
  Sex: Male
  Weight: 109 kg

DRUGS (4)
  1. IRINOTECAN HCL [Suspect]
     Indication: SMALL CELL LUNG CANCER STAGE UNSPECIFIED
     Dosage: SEE IMAGE
     Route: 042
     Dates: start: 20051108, end: 20051108
  2. CISPLATIN [Suspect]
     Dosage: SEE IMAGE
     Route: 042
     Dates: start: 20051108, end: 20051108
  3. ETOPOSIDE [Suspect]
     Dosage: SEE IMAGE
     Route: 048
     Dates: start: 20051110, end: 20051110
  4. ETOPOSIDE [Suspect]
     Dosage: SEE IMAGE
     Route: 048
     Dates: start: 20051108

REACTIONS (6)
  - ANOREXIA [None]
  - DRUG TOXICITY [None]
  - DYSGEUSIA [None]
  - DYSPNOEA EXERTIONAL [None]
  - FATIGUE [None]
  - WEIGHT DECREASED [None]
